FAERS Safety Report 8619999-2 (Version None)
Quarter: 2012Q3

REPORT INFORMATION
  Report Type: 
  Country: None (occurrence: None)
  Receive Date: 20120824
  Receipt Date: 20120817
  Transmission Date: 20120928
  Serious: Yes (Hospitalization)
  Sender: FDA-Public Use
  Company Number: PHHY2012GB072298

PATIENT
  Sex: Male
  Weight: 74.8 kg

DRUGS (2)
  1. ACETAMINOPHEN [Concomitant]
     Indication: CHEST PAIN
     Dosage: 1 G, UNK
  2. ILARIS [Suspect]
     Indication: CRYOPYRIN ASSOCIATED PERIODIC SYNDROME
     Dosage: 150 MG, UNK
     Route: 058
     Dates: start: 20050501

REACTIONS (1)
  - PNEUMONIA [None]
